FAERS Safety Report 6790834-0 (Version None)
Quarter: 2010Q2

REPORT INFORMATION
  Report Type: 
  Country: None (occurrence: None)
  Receive Date: 20100624
  Receipt Date: 20100617
  Transmission Date: 20101027
  Serious: Yes (Hospitalization)
  Sender: FDA-Public Use
  Company Number: A0802603A

PATIENT
  Age: 51 Year
  Sex: Male
  Weight: 135.5 kg

DRUGS (17)
  1. AVANDAMET [Suspect]
     Indication: DIABETES MELLITUS
     Dosage: 4MG TWICE PER DAY
     Route: 048
     Dates: start: 20021122, end: 20070713
  2. AVANDIA [Suspect]
     Dosage: 8MG PER DAY
     Route: 048
     Dates: start: 20020606
  3. AVANDARYL [Suspect]
     Route: 048
     Dates: start: 20060809
  4. AMARYL [Concomitant]
  5. CLARITIN [Concomitant]
  6. GLUCOPHAGE [Concomitant]
  7. FELDENE [Concomitant]
  8. POTASSIUM CHLORIDE [Concomitant]
  9. PREDNISONE [Concomitant]
  10. NEURONTIN [Concomitant]
  11. LORCET-HD [Concomitant]
  12. XALATAN [Concomitant]
  13. PRILOSEC [Concomitant]
  14. VYTORIN [Concomitant]
  15. XANAX [Concomitant]
  16. CYTOXAN [Concomitant]
  17. CPAP [Concomitant]

REACTIONS (6)
  - CARDIAC DISORDER [None]
  - CARDIAC FAILURE CONGESTIVE [None]
  - CARDIOVASCULAR DISORDER [None]
  - CEREBRAL INFARCTION [None]
  - HYPOXIA [None]
  - INTRACARDIAC THROMBUS [None]
